FAERS Safety Report 7103449-1 (Version None)
Quarter: 2010Q4

REPORT INFORMATION
  Report Type: 
  Country: None (occurrence: None)
  Receive Date: 20101109
  Receipt Date: 20101101
  Transmission Date: 20110411
  Serious: Yes (Other)
  Sender: FDA-Public Use
  Company Number: TRP_07370_2010

PATIENT
  Sex: Female

DRUGS (3)
  1. RIBAPAK (NOT SPECIFIED) [Suspect]
     Indication: HEPATITIS
     Dosage: TEMPORARILY WITHDRAWN,
     Dates: start: 20100724
  2. RIBASPHERE [Suspect]
     Indication: HEPATITIS
     Dosage: TEMPORARY WITHDRAWN
     Dates: start: 20100724
  3. PEG-INTRON [Suspect]
     Indication: HEPATITIS
     Dates: start: 20100724

REACTIONS (3)
  - ANAEMIA [None]
  - FALL [None]
  - HEAD INJURY [None]
